FAERS Safety Report 4492428-9 (Version None)
Quarter: 2004Q4

REPORT INFORMATION
  Report Type: 
  Country: None (occurrence: None)
  Receive Date: 20041103
  Receipt Date: 20041103
  Transmission Date: 20050328
  Serious: Yes (Life-Threatening)
  Sender: FDA-Public Use
  Company Number: None

PATIENT
  Sex: Male
  Weight: 27.2158 kg

DRUGS (1)
  1. WELLBUTRIN [Suspect]
     Indication: BIPOLAR I DISORDER
     Dosage: DAILY  ORAL
     Route: 048

REACTIONS (2)
  - AGGRESSION [None]
  - AGITATION [None]
